FAERS Safety Report 8942188 (Version 1)
Quarter: 2012Q4

REPORT INFORMATION
  Report Type: Report from Study
  Country: CA (occurrence: CA)
  Receive Date: 20121202
  Receipt Date: 20121202
  Transmission Date: 20130627
  Serious: Yes (Hospitalization, Other)
  Sender: FDA-Public Use
  Company Number: CA-ABBOTT-12P-028-1013880-00

PATIENT
  Age: 27 Year
  Sex: Male
  Weight: 54.48 kg

DRUGS (2)
  1. HUMIRA [Suspect]
     Indication: CROHN^S DISEASE
     Route: 058
     Dates: start: 20121024, end: 20121115
  2. PREDNISONE [Concomitant]

REACTIONS (2)
  - Colonic stenosis [Recovered/Resolved]
  - Fibrosing colonopathy [Recovered/Resolved]
